FAERS Safety Report 4813864-4 (Version None)
Quarter: 2005Q4

REPORT INFORMATION
  Report Type: 
  Country: None (occurrence: None)
  Receive Date: 20051028
  Receipt Date: 20050330
  Transmission Date: 20060501
  Serious: No
  Sender: FDA-Public Use
  Company Number: US-GLAXOSMITHKLINE-A0551920A

PATIENT
  Age: 54 Year
  Sex: Female

DRUGS (15)
  1. ADVAIR DISKUS 100/50 [Suspect]
     Indication: CHRONIC OBSTRUCTIVE PULMONARY DISEASE
     Dosage: 1PUFF TWICE PER DAY
     Route: 055
     Dates: start: 20030701
  2. LEVOXYL [Concomitant]
  3. LOPRESSOR [Concomitant]
  4. DIOVAN HCT [Concomitant]
  5. LIPITOR [Concomitant]
  6. PREDNISONE [Concomitant]
  7. IMURAN [Concomitant]
  8. ENBREL [Concomitant]
  9. CENESTIN [Concomitant]
  10. BUSPAR [Concomitant]
  11. DIAZEPAM [Concomitant]
  12. LEXAPRO [Concomitant]
  13. FOSAMAX [Concomitant]
  14. NORGESIC FORTE [Concomitant]
  15. FOLIC ACID [Concomitant]

REACTIONS (1)
  - DRUG INEFFECTIVE [None]
